FAERS Safety Report 11541727 (Version 1)
Quarter: 2015Q3

REPORT INFORMATION
  Report Type: Spontaneous
  Country: JP (occurrence: JP)
  Receive Date: 20150923
  Receipt Date: 20150923
  Transmission Date: 20151125
  Serious: Yes (Other)
  Sender: FDA-Public Use
  Company Number: JP-MYLANLABS-2015M1031087

PATIENT

DRUGS (2)
  1. PRAMIPEXOLE HYDROCHLORIDE TABLETS 0.125MG [PFIZER] [Suspect]
     Active Substance: PRAMIPEXOLE DIHYDROCHLORIDE
     Dosage: 0.062 MG, PRN
     Route: 048
  2. PRAMIPEXOLE HYDROCHLORIDE TABLETS 0.125MG [PFIZER] [Suspect]
     Active Substance: PRAMIPEXOLE DIHYDROCHLORIDE
     Indication: GLOSSODYNIA
     Dosage: 0.125 MG, QD
     Route: 048

REACTIONS (1)
  - Discomfort [Unknown]
